FAERS Safety Report 12472495 (Version 1)
Quarter: 2016Q2

REPORT INFORMATION
  Report Type: Spontaneous
  Country: US (occurrence: US)
  Receive Date: 20160616
  Receipt Date: 20160616
  Transmission Date: 20160815
  Serious: Yes (Hospitalization)
  Sender: FDA-Public Use
  Company Number: US-ASTRAZENECA-2016SE62059

PATIENT
  Sex: Female

DRUGS (2)
  1. MULTIPLE IDIOPATHIC CONSTIPATION MEDICATIONS [Concomitant]
     Indication: CONSTIPATION
  2. MOVANTIK [Suspect]
     Active Substance: NALOXEGOL OXALATE
     Indication: CONSTIPATION
     Route: 048

REACTIONS (1)
  - Gastrointestinal obstruction [Unknown]
